FAERS Safety Report 16449093 (Version 5)
Quarter: 2019Q3

REPORT INFORMATION
  Report Type: Report from Study
  Country: CN (occurrence: CN)
  Receive Date: 20190619
  Receipt Date: 20190917
  Transmission Date: 20191004
  Serious: Yes (Hospitalization)
  Sender: FDA-Public Use
  Company Number: CN-ROCHE-2259397

PATIENT
  Age: 57 Year
  Sex: Female
  Weight: 51.5 kg

DRUGS (134)
  1. FAT EMULSION NOS [Concomitant]
     Active Substance: EGG PHOSPHOLIPIDS\SAFFLOWER OIL\SOYBEAN OIL
     Route: 042
     Dates: start: 20190610, end: 20190623
  2. POTASSIUM CHLORIDE. [Concomitant]
     Active Substance: POTASSIUM CHLORIDE
     Indication: DECREASED APPETITE
     Route: 042
     Dates: start: 20190105, end: 20190107
  3. POTASSIUM CHLORIDE. [Concomitant]
     Active Substance: POTASSIUM CHLORIDE
     Route: 042
     Dates: start: 20190130, end: 20190225
  4. POTASSIUM CHLORIDE. [Concomitant]
     Active Substance: POTASSIUM CHLORIDE
     Route: 065
     Dates: start: 20190515, end: 20190515
  5. OXYCODONE [Concomitant]
     Active Substance: OXYCODONE
     Route: 048
     Dates: start: 20190129, end: 20190129
  6. INDOMETHACIN [INDOMETACIN] [Concomitant]
     Active Substance: INDOMETHACIN
     Route: 054
     Dates: start: 20190129, end: 20190129
  7. INDOMETHACIN [INDOMETACIN] [Concomitant]
     Active Substance: INDOMETHACIN
     Route: 054
     Dates: start: 20190107, end: 20190107
  8. INDOMETHACIN [INDOMETACIN] [Concomitant]
     Active Substance: INDOMETHACIN
     Route: 054
     Dates: start: 20190111, end: 20190111
  9. CODEINE PHOSPHATE [Concomitant]
     Active Substance: CODEINE PHOSPHATE
     Route: 048
     Dates: start: 20190130, end: 20190130
  10. CODEINE PHOSPHATE [Concomitant]
     Active Substance: CODEINE PHOSPHATE
     Route: 048
     Dates: start: 20190202, end: 20190202
  11. DEXAMETHASONE. [Concomitant]
     Active Substance: DEXAMETHASONE
     Dosage: SOLUTION
     Route: 042
     Dates: start: 20190216, end: 20190225
  12. OSELTAMIVIR [Concomitant]
     Active Substance: OSELTAMIVIR
     Route: 048
     Dates: start: 20190209, end: 20190215
  13. METOCLOPRAMIDE. [Concomitant]
     Active Substance: METOCLOPRAMIDE
     Indication: DECREASED APPETITE
     Route: 030
     Dates: start: 20190212, end: 20190212
  14. BIAPENEM [Concomitant]
     Active Substance: BIAPENEM
     Route: 065
     Dates: start: 20190516, end: 20190522
  15. LOPERAMIDE HYDROCHLORIDE. [Concomitant]
     Active Substance: LOPERAMIDE HYDROCHLORIDE
     Indication: DIARRHOEA
     Route: 048
     Dates: start: 20190322, end: 20190326
  16. METOPROLOL TARTRATE. [Concomitant]
     Active Substance: METOPROLOL TARTRATE
     Route: 048
     Dates: start: 20190522
  17. COMPOUND PLATYCODON [Concomitant]
     Route: 048
     Dates: start: 20190512, end: 20190512
  18. PULMICORT TURBUHALER [Concomitant]
     Active Substance: BUDESONIDE
     Route: 065
     Dates: start: 20190607, end: 20190613
  19. DISODIUM CANTHARIDINATE [Concomitant]
     Route: 042
     Dates: start: 20190608, end: 20190616
  20. POTASSIUM CHLORIDE. [Concomitant]
     Active Substance: POTASSIUM CHLORIDE
     Route: 042
     Dates: start: 20190108, end: 20190116
  21. INDOMETHACIN [INDOMETACIN] [Concomitant]
     Active Substance: INDOMETHACIN
     Route: 048
     Dates: start: 20190220, end: 20190220
  22. INDOMETHACIN [INDOMETACIN] [Concomitant]
     Active Substance: INDOMETHACIN
     Route: 065
     Dates: start: 20190516, end: 20190516
  23. INDOMETHACIN [INDOMETACIN] [Concomitant]
     Active Substance: INDOMETHACIN
     Route: 048
     Dates: start: 20190327, end: 20190327
  24. CODEINE PHOSPHATE [Concomitant]
     Active Substance: CODEINE PHOSPHATE
     Route: 048
     Dates: start: 20190420, end: 20190421
  25. BERBERINE [Concomitant]
     Active Substance: BERBERINE
     Route: 048
     Dates: start: 20190210, end: 20190210
  26. CEFTIZOXIME SODIUM [Concomitant]
     Active Substance: CEFTIZOXIME SODIUM
     Route: 042
     Dates: start: 20190213, end: 20190220
  27. THYMOSTIMULIN [Concomitant]
     Indication: PROPHYLAXIS
     Route: 065
     Dates: start: 20181115, end: 20181118
  28. COMBIVENT [Concomitant]
     Active Substance: ALBUTEROL SULFATE\IPRATROPIUM BROMIDE
     Route: 065
     Dates: start: 20190607, end: 20190613
  29. TRAMADOL HYDROCHLORIDE. [Concomitant]
     Active Substance: TRAMADOL HYDROCHLORIDE
     Route: 048
     Dates: start: 20190106, end: 20190613
  30. POTASSIUM CHLORIDE. [Concomitant]
     Active Substance: POTASSIUM CHLORIDE
     Route: 048
     Dates: start: 20190513, end: 20190522
  31. OXYCONTIN [Concomitant]
     Active Substance: OXYCODONE HYDROCHLORIDE
     Route: 048
     Dates: start: 20190105, end: 20190116
  32. POTASSIUM CITRATE. [Concomitant]
     Active Substance: POTASSIUM CITRATE
     Route: 048
     Dates: start: 20190512, end: 20190512
  33. POTASSIUM CITRATE. [Concomitant]
     Active Substance: POTASSIUM CITRATE
     Route: 048
     Dates: start: 20190607, end: 20190613
  34. OXYCODONE [Concomitant]
     Active Substance: OXYCODONE
     Route: 048
     Dates: start: 20190107, end: 20190114
  35. OXYCODONE [Concomitant]
     Active Substance: OXYCODONE
     Route: 048
     Dates: start: 20190202, end: 20190202
  36. INDOMETHACIN [INDOMETACIN] [Concomitant]
     Active Substance: INDOMETHACIN
     Indication: PYREXIA
     Route: 054
     Dates: start: 20190111, end: 20190111
  37. INDOMETHACIN [INDOMETACIN] [Concomitant]
     Active Substance: INDOMETHACIN
     Route: 054
     Dates: start: 20190213, end: 20190213
  38. INDOMETHACIN [INDOMETACIN] [Concomitant]
     Active Substance: INDOMETHACIN
     Route: 054
     Dates: start: 20190109, end: 20190109
  39. INDOMETHACIN [INDOMETACIN] [Concomitant]
     Active Substance: INDOMETHACIN
     Route: 054
     Dates: start: 20190323, end: 20190323
  40. INDOMETHACIN [INDOMETACIN] [Concomitant]
     Active Substance: INDOMETHACIN
     Route: 048
     Dates: start: 20190329, end: 20190329
  41. CODEINE PHOSPHATE [Concomitant]
     Active Substance: CODEINE PHOSPHATE
     Indication: PROPHYLAXIS
     Dosage: 2 TABLET
     Route: 048
     Dates: start: 20190116, end: 20190116
  42. CODEINE PHOSPHATE [Concomitant]
     Active Substance: CODEINE PHOSPHATE
     Route: 048
     Dates: start: 20190207, end: 20190207
  43. MEDROXYPROGESTERONE [Concomitant]
     Active Substance: MEDROXYPROGESTERONE
     Indication: DECREASED APPETITE
     Route: 065
     Dates: start: 20190130, end: 20190130
  44. MEDROXYPROGESTERONE [Concomitant]
     Active Substance: MEDROXYPROGESTERONE
     Route: 065
     Dates: start: 20190514, end: 20190522
  45. DEXAMETHASONE. [Concomitant]
     Active Substance: DEXAMETHASONE
     Indication: PROPHYLAXIS
     Route: 042
     Dates: start: 20190202, end: 20190202
  46. DEXAMETHASONE. [Concomitant]
     Active Substance: DEXAMETHASONE
     Route: 042
     Dates: start: 20190214, end: 20190215
  47. DEXAMETHASONE. [Concomitant]
     Active Substance: DEXAMETHASONE
     Dosage: SOLUTION
     Route: 042
     Dates: start: 20190216, end: 20190225
  48. DEXAMETHASONE. [Concomitant]
     Active Substance: DEXAMETHASONE
     Dosage: SOLUTION
     Route: 042
     Dates: start: 20190213, end: 20190213
  49. OSELTAMIVIR [Concomitant]
     Active Substance: OSELTAMIVIR
     Indication: PROPHYLAXIS
     Route: 048
     Dates: start: 20190209, end: 20190209
  50. IMIPENEM CILASTATINE MYLAN [Concomitant]
     Active Substance: IMIPENEM
     Indication: EMPYEMA
     Route: 042
     Dates: start: 20190131, end: 20190213
  51. FLUCONAZOLE. [Concomitant]
     Active Substance: FLUCONAZOLE
     Route: 048
     Dates: start: 20190215, end: 20190215
  52. ESTAZOLAM. [Concomitant]
     Active Substance: ESTAZOLAM
     Indication: INSOMNIA
     Route: 048
     Dates: start: 20190215, end: 20190217
  53. BIAPENEM [Concomitant]
     Active Substance: BIAPENEM
     Route: 042
     Dates: start: 20190328, end: 20190330
  54. METOPROLOL TARTRATE. [Concomitant]
     Active Substance: METOPROLOL TARTRATE
     Route: 048
     Dates: start: 20190512, end: 20190522
  55. POTASSIUM CITRATE. [Concomitant]
     Active Substance: POTASSIUM CITRATE
     Route: 048
     Dates: start: 20190329, end: 20190330
  56. AMBROXOL [Concomitant]
     Active Substance: AMBROXOL
     Route: 042
     Dates: start: 20190105, end: 20190116
  57. POTASSIUM CITRATE. [Concomitant]
     Active Substance: POTASSIUM CITRATE
     Route: 048
     Dates: start: 20190215, end: 20190215
  58. DUPHALAC [Concomitant]
     Active Substance: LACTULOSE
     Route: 048
     Dates: start: 20190114, end: 20190116
  59. DEZOCINE [Concomitant]
     Active Substance: DEZOCINE
     Route: 042
     Dates: start: 20190105, end: 20190105
  60. INDOMETHACIN [INDOMETACIN] [Concomitant]
     Active Substance: INDOMETHACIN
     Indication: PROPHYLAXIS
     Route: 054
     Dates: start: 20190106, end: 20190107
  61. INDOMETHACIN [INDOMETACIN] [Concomitant]
     Active Substance: INDOMETHACIN
     Route: 054
     Dates: start: 20190212, end: 20190212
  62. CODEINE PHOSPHATE [Concomitant]
     Active Substance: CODEINE PHOSPHATE
     Route: 048
     Dates: start: 20190515, end: 20190515
  63. CODEINE PHOSPHATE [Concomitant]
     Active Substance: CODEINE PHOSPHATE
     Route: 048
     Dates: start: 20190520, end: 20190520
  64. CEFTIZOXIME SODIUM [Concomitant]
     Active Substance: CEFTIZOXIME SODIUM
     Route: 042
     Dates: start: 20190606, end: 20190616
  65. ALBUMIN [Concomitant]
     Active Substance: ALBUMIN HUMAN
     Dosage: PREPARED FROM HUMAN PLASMA?LIQUID
     Route: 050
     Dates: start: 20190416, end: 20190418
  66. ALBUMIN PREPARED FROM HUMAN PLASMA [Concomitant]
     Route: 042
     Dates: start: 20190515, end: 20190518
  67. COMBIVENT [Concomitant]
     Active Substance: ALBUTEROL SULFATE\IPRATROPIUM BROMIDE
     Route: 065
     Dates: start: 20190606, end: 20190606
  68. POTASSIUM CHLORIDE. [Concomitant]
     Active Substance: POTASSIUM CHLORIDE
     Route: 048
     Dates: start: 20190522
  69. AMBROXOL [Concomitant]
     Active Substance: AMBROXOL
     Route: 042
     Dates: start: 20190130, end: 20190225
  70. POTASSIUM CITRATE. [Concomitant]
     Active Substance: POTASSIUM CITRATE
     Route: 048
     Dates: start: 20190108, end: 20190116
  71. POTASSIUM CITRATE. [Concomitant]
     Active Substance: POTASSIUM CITRATE
     Route: 048
     Dates: start: 20190606, end: 20190607
  72. OXYCODONE [Concomitant]
     Active Substance: OXYCODONE
     Route: 048
     Dates: start: 20190105, end: 20190105
  73. INDOMETHACIN [INDOMETACIN] [Concomitant]
     Active Substance: INDOMETHACIN
     Route: 054
     Dates: start: 20190203, end: 20190203
  74. CODEINE PHOSPHATE [Concomitant]
     Active Substance: CODEINE PHOSPHATE
     Route: 048
     Dates: start: 20190522
  75. DEXAMETHASONE. [Concomitant]
     Active Substance: DEXAMETHASONE
     Route: 042
     Dates: start: 20190213, end: 20190214
  76. DEXAMETHASONE. [Concomitant]
     Active Substance: DEXAMETHASONE
     Dosage: SOLUTION
     Route: 042
     Dates: start: 20190215, end: 20190215
  77. HUMAN SERUM ALBUMIN [Concomitant]
     Active Substance: ALBUMIN HUMAN
     Indication: DECREASED APPETITE
     Route: 042
     Dates: start: 20190201, end: 20190202
  78. MOXIFLOXACIN. [Concomitant]
     Active Substance: MOXIFLOXACIN
     Route: 042
     Dates: start: 20190203, end: 20190213
  79. PANTOPRAZOLE [Concomitant]
     Active Substance: PANTOPRAZOLE
     Indication: PROPHYLAXIS
     Route: 042
     Dates: start: 20190205, end: 20190225
  80. CEFTIZOXIME SODIUM [Concomitant]
     Active Substance: CEFTIZOXIME SODIUM
     Route: 065
     Dates: start: 20181115, end: 20181118
  81. ONDANSETRON HYDROCHLORIDE. [Concomitant]
     Active Substance: ONDANSETRON HYDROCHLORIDE
     Indication: PROPHYLAXIS
     Dosage: PILL
     Route: 048
     Dates: start: 20190415, end: 20190421
  82. ALBUMIN [Concomitant]
     Active Substance: ALBUMIN HUMAN
     Dosage: PREPARED FROM HUMAN PLASMA
     Route: 050
     Dates: start: 20190617, end: 20190619
  83. METOPROLOL TARTRATE. [Concomitant]
     Active Substance: METOPROLOL TARTRATE
     Route: 048
     Dates: start: 20190421
  84. VITAMIN C [Concomitant]
     Active Substance: ASCORBIC ACID
     Route: 042
     Dates: start: 20190613, end: 20190623
  85. VITAMIN B6 [Concomitant]
     Active Substance: PYRIDOXINE HYDROCHLORIDE
     Route: 042
     Dates: start: 20190613, end: 20190623
  86. PULMICORT TURBUHALER [Concomitant]
     Active Substance: BUDESONIDE
     Route: 065
     Dates: start: 20190606, end: 20190606
  87. LIDOCAINE HYDROCHLORIDE. [Concomitant]
     Active Substance: LIDOCAINE HYDROCHLORIDE
     Route: 042
     Dates: start: 20190514, end: 20190514
  88. ATEZOLIZUMAB. [Suspect]
     Active Substance: ATEZOLIZUMAB
     Indication: NON-SMALL CELL LUNG CANCER
     Dosage: ON 30/JAN/2019 AT 12:30, MOST RECENT DOSE OF ATEZOLIZUMAB PRIOR TO PLEURAL EFFUSION AND HYPOTHYROIDI
     Route: 042
     Dates: start: 20181218
  89. TRAMADOL HYDROCHLORIDE. [Concomitant]
     Active Substance: TRAMADOL HYDROCHLORIDE
     Indication: PROPHYLAXIS
     Route: 048
  90. TRAMADOL HYDROCHLORIDE. [Concomitant]
     Active Substance: TRAMADOL HYDROCHLORIDE
     Route: 048
     Dates: start: 20190110, end: 20190116
  91. POTASSIUM CHLORIDE. [Concomitant]
     Active Substance: POTASSIUM CHLORIDE
     Route: 042
     Dates: start: 20190129, end: 20190130
  92. POTASSIUM CHLORIDE. [Concomitant]
     Active Substance: POTASSIUM CHLORIDE
     Dosage: PILL
     Route: 048
     Dates: start: 20190315, end: 20190320
  93. POTASSIUM CHLORIDE. [Concomitant]
     Active Substance: POTASSIUM CHLORIDE
     Route: 042
     Dates: start: 20190613, end: 20190623
  94. DUPHALAC [Concomitant]
     Active Substance: LACTULOSE
     Route: 048
     Dates: start: 20190114, end: 20190114
  95. INDOMETHACIN [INDOMETACIN] [Concomitant]
     Active Substance: INDOMETHACIN
     Route: 054
     Dates: start: 20190216, end: 20190218
  96. PLATYCODON GRANDIFLORUS [Concomitant]
     Route: 048
     Dates: start: 20190205, end: 20190205
  97. CEFTIZOXIME SODIUM [Concomitant]
     Active Substance: CEFTIZOXIME SODIUM
     Route: 042
     Dates: start: 20190105, end: 20190118
  98. FLUCONAZOLE. [Concomitant]
     Active Substance: FLUCONAZOLE
     Route: 048
     Dates: start: 20190215, end: 20190222
  99. ONDANSETRON HYDROCHLORIDE. [Concomitant]
     Active Substance: ONDANSETRON HYDROCHLORIDE
     Route: 048
     Dates: start: 20190522
  100. PANTOPRAZOLE SODIUM. [Concomitant]
     Active Substance: PANTOPRAZOLE SODIUM
     Route: 050
     Dates: start: 20190115, end: 20190116
  101. ALBUMIN PREPARED FROM HUMAN PLASMA [Concomitant]
     Route: 042
     Dates: start: 20190512, end: 20190515
  102. ALBUMIN PREPARED FROM HUMAN PLASMA [Concomitant]
     Route: 042
     Dates: start: 20190613, end: 20190615
  103. COMBIVENT [Concomitant]
     Active Substance: ALBUTEROL SULFATE\IPRATROPIUM BROMIDE
     Route: 065
     Dates: start: 20190616, end: 20190623
  104. TRAMADOL HYDROCHLORIDE. [Concomitant]
     Active Substance: TRAMADOL HYDROCHLORIDE
     Route: 048
     Dates: start: 20190514, end: 20190517
  105. POTASSIUM CHLORIDE. [Concomitant]
     Active Substance: POTASSIUM CHLORIDE
     Dosage: PILL
     Route: 048
     Dates: start: 20190420, end: 20190421
  106. POTASSIUM CHLORIDE. [Concomitant]
     Active Substance: POTASSIUM CHLORIDE
     Dosage: SOLUTION
     Route: 048
     Dates: start: 20190415, end: 20190415
  107. POTASSIUM CHLORIDE. [Concomitant]
     Active Substance: POTASSIUM CHLORIDE
     Route: 042
     Dates: start: 20190614, end: 20190614
  108. INDOMETHACIN [INDOMETACIN] [Concomitant]
     Active Substance: INDOMETHACIN
     Route: 054
     Dates: start: 20190205, end: 20190205
  109. INDOMETHACIN [INDOMETACIN] [Concomitant]
     Active Substance: INDOMETHACIN
     Route: 054
     Dates: start: 20190218, end: 20190222
  110. INDOMETHACIN [INDOMETACIN] [Concomitant]
     Active Substance: INDOMETHACIN
     Dosage: PILL
     Route: 054
     Dates: start: 20190417, end: 20190417
  111. INDOMETHACIN [INDOMETACIN] [Concomitant]
     Active Substance: INDOMETHACIN
     Route: 065
     Dates: start: 20190514, end: 20190514
  112. CODEINE PHOSPHATE [Concomitant]
     Active Substance: CODEINE PHOSPHATE
     Dosage: 1 TABLET
     Route: 048
     Dates: start: 20190129, end: 20190129
  113. CODEINE PHOSPHATE [Concomitant]
     Active Substance: CODEINE PHOSPHATE
     Route: 048
     Dates: start: 20190609, end: 20190609
  114. MEDROXYPROGESTERONE [Concomitant]
     Active Substance: MEDROXYPROGESTERONE
     Route: 048
     Dates: start: 20190130, end: 20190203
  115. BERBERINE [Concomitant]
     Active Substance: BERBERINE
     Route: 048
     Dates: start: 20190212, end: 20190212
  116. BERBERINE [Concomitant]
     Active Substance: BERBERINE
     Route: 048
     Dates: start: 20190220, end: 20190220
  117. METOPROLOL TARTRATE. [Concomitant]
     Active Substance: METOPROLOL TARTRATE
     Route: 048
     Dates: start: 20190606, end: 20190613
  118. METOPROLOL TARTRATE. [Concomitant]
     Active Substance: METOPROLOL TARTRATE
     Route: 048
     Dates: start: 20190614, end: 20190620
  119. COMPOUND PLATYCODON [Concomitant]
     Route: 048
     Dates: start: 20190518, end: 20190518
  120. ALBUMIN PREPARED FROM HUMAN PLASMA [Concomitant]
     Route: 042
     Dates: start: 20190518, end: 20190522
  121. ALBUMIN PREPARED FROM HUMAN PLASMA [Concomitant]
     Route: 042
     Dates: start: 20190608, end: 20190611
  122. ALBUMIN PREPARED FROM HUMAN PLASMA [Concomitant]
     Route: 042
     Dates: start: 20190617, end: 20190619
  123. POTASSIUM CHLORIDE. [Concomitant]
     Active Substance: POTASSIUM CHLORIDE
     Route: 048
     Dates: start: 20190203, end: 20190215
  124. INDOMETHACIN [INDOMETACIN] [Concomitant]
     Active Substance: INDOMETHACIN
     Route: 054
     Dates: start: 20190209, end: 20190209
  125. INDOMETHACIN [INDOMETACIN] [Concomitant]
     Active Substance: INDOMETHACIN
     Route: 054
     Dates: start: 20190215, end: 20190215
  126. INDOMETHACIN [INDOMETACIN] [Concomitant]
     Active Substance: INDOMETHACIN
     Route: 054
     Dates: start: 20190108, end: 20190108
  127. INDOMETHACIN [INDOMETACIN] [Concomitant]
     Active Substance: INDOMETHACIN
     Route: 065
     Dates: start: 20190512, end: 20190512
  128. INDOMETHACIN [INDOMETACIN] [Concomitant]
     Active Substance: INDOMETHACIN
     Route: 048
     Dates: start: 20190222, end: 20190222
  129. CODEINE PHOSPHATE [Concomitant]
     Active Substance: CODEINE PHOSPHATE
     Route: 048
     Dates: start: 20190606, end: 20190606
  130. GRANISETRON [Concomitant]
     Active Substance: GRANISETRON
     Route: 042
     Dates: start: 20190213, end: 20190215
  131. LOPERAMIDE [Concomitant]
     Active Substance: LOPERAMIDE
     Route: 048
     Dates: start: 20190212, end: 20190212
  132. OXYCODONE HYDROCHLORIDE. [Concomitant]
     Active Substance: OXYCODONE HYDROCHLORIDE
     Route: 048
     Dates: start: 20190105
  133. PANTOPRAZOLE SODIUM. [Concomitant]
     Active Substance: PANTOPRAZOLE SODIUM
     Route: 042
     Dates: start: 20190605, end: 20190623
  134. METOPROLOL TARTRATE. [Concomitant]
     Active Substance: METOPROLOL TARTRATE
     Route: 048
     Dates: start: 20190416, end: 20190421

REACTIONS (3)
  - Pleural effusion [Recovered/Resolved]
  - Hydrothorax [Recovered/Resolved]
  - Lung infection [Not Recovered/Not Resolved]

NARRATIVE: CASE EVENT DATE: 20190130
